FAERS Safety Report 10020548 (Version 1)
Quarter: 2014Q1

REPORT INFORMATION
  Report Type: Spontaneous
  Country: US (occurrence: US)
  Receive Date: 20140319
  Receipt Date: 20140319
  Transmission Date: 20141002
  Serious: No
  Sender: FDA-Public Use
  Company Number: US-BIOGENIDEC-2014BI023179

PATIENT
  Sex: Female

DRUGS (2)
  1. TECFIDERA [Suspect]
     Indication: MULTIPLE SCLEROSIS
  2. TYSABRI [Concomitant]
     Indication: MULTIPLE SCLEROSIS
     Route: 042
     Dates: start: 20131202

REACTIONS (9)
  - Temperature intolerance [Unknown]
  - Adverse drug reaction [Unknown]
  - Vascular pain [Unknown]
  - Fatigue [Unknown]
  - Emotional disorder [Unknown]
  - Stress [Unknown]
  - Multiple sclerosis [Unknown]
  - Visual impairment [Unknown]
  - Multiple sclerosis relapse [Unknown]
